FAERS Safety Report 13170118 (Version 1)
Quarter: 2017Q1

REPORT INFORMATION
  Report Type: Spontaneous
  Country: FR (occurrence: FR)
  Receive Date: 20170201
  Receipt Date: 20170201
  Transmission Date: 20170428
  Serious: Yes (Hospitalization)
  Sender: FDA-Public Use
  Company Number: FR-ASTRAZENECA-2017SE10660

PATIENT
  Age: 10670 Day
  Sex: Male

DRUGS (4)
  1. DEPAKOTE [Suspect]
     Active Substance: DIVALPROEX SODIUM
     Route: 048
  2. XEROQUEL [Suspect]
     Active Substance: QUETIAPINE FUMARATE
     Route: 048
  3. PARKINANE [Suspect]
     Active Substance: TRIHEXYPHENIDYL HYDROCHLORIDE
     Route: 048
  4. SUBOXONE [Suspect]
     Active Substance: BUPRENORPHINE HYDROCHLORIDE\NALOXONE HYDROCHLORIDE
     Route: 048

REACTIONS (9)
  - Tachycardia [Unknown]
  - Haematuria [Unknown]
  - Vomiting [Unknown]
  - White blood cell count increased [Unknown]
  - Diarrhoea [Unknown]
  - Faecaloma [Recovered/Resolved]
  - Pyrexia [Unknown]
  - Dysuria [Unknown]
  - Somnolence [Unknown]

NARRATIVE: CASE EVENT DATE: 20170109
